FAERS Safety Report 16321336 (Version 2)
Quarter: 2020Q1

REPORT INFORMATION
  Report Type: Spontaneous
  Country: GR (occurrence: GR)
  Receive Date: 20190516
  Receipt Date: 20200330
  Transmission Date: 20200409
  Serious: Yes (Hospitalization, Other)
  Sender: FDA-Public Use
  Company Number: GR-MYLANLABS-2018M1035008

PATIENT
  Age: 71 Year
  Sex: Female

DRUGS (6)
  1. VENLAFAXINE [Concomitant]
     Active Substance: VENLAFAXINE HYDROCHLORIDE
     Indication: DEPRESSION
     Dosage: DISCONTINUED 15 DAY BEFORE THE PRESENTATION
  2. AMITRIPTYLINE [Concomitant]
     Active Substance: AMITRIPTYLINE
     Indication: DEPRESSION
     Dosage: RECEIVING ABOUT 15 DAY BEFORE THE PRESENTATION
  3. OLMESARTAN MEDOXOMIL. [Suspect]
     Active Substance: OLMESARTAN MEDOXOMIL
     Indication: HYPERTENSION
     Dosage: 40 MILLIGRAM(RECEIVING SINCE 5 YEARS)
     Route: 065
  4. CLORAZEPATE [Concomitant]
     Active Substance: CLORAZEPATE DIPOTASSIUM
     Indication: DEPRESSION
     Dosage: RECEIVING ABOUT 15 DAY BEFORE THE PRESENTATION
  5. DULOXETINE. [Concomitant]
     Active Substance: DULOXETINE
     Indication: DEPRESSION
     Dosage: RECEIVING ABOUT 15 DAY BEFORE THE PRESENTATION
  6. AMLODIPINE [Concomitant]
     Active Substance: AMLODIPINE BESYLATE
     Indication: HYPERTENSION
     Dosage: RECEIVING SINCE 5 YEARS

REACTIONS (2)
  - Gastrointestinal disorder [Recovered/Resolved]
  - Sprue-like enteropathy [Recovering/Resolving]
